FAERS Safety Report 8313523-X (Version None)
Quarter: 2012Q2

REPORT INFORMATION
  Report Type: 
  Country: None (occurrence: None)
  Receive Date: 20120426
  Receipt Date: 20120418
  Transmission Date: 20120825
  Serious: Yes (Hospitalization)
  Sender: FDA-Public Use
  Company Number: US-NOVOPROD-349762

PATIENT
  Age: 48 Year
  Sex: Female
  Weight: 78.005 kg

DRUGS (3)
  1. VICTOZA [Suspect]
     Dosage: 1.2 MG, QD
     Route: 058
     Dates: start: 20120415
  2. VICTOZA [Suspect]
     Dosage: 1.2 MG, QD
     Route: 058
     Dates: start: 20120201, end: 20120301
  3. VICTOZA [Suspect]
     Indication: TYPE 2 DIABETES MELLITUS
     Dosage: UNK
     Route: 058
     Dates: start: 20120201, end: 20120201

REACTIONS (4)
  - DIARRHOEA [None]
  - CHOLECYSTITIS INFECTIVE [None]
  - VOMITING [None]
  - NAUSEA [None]
